FAERS Safety Report 23280422 (Version 1)
Quarter: 2023Q4

REPORT INFORMATION
  Report Type: Spontaneous
  Country: FR (occurrence: FR)
  Receive Date: 20231211
  Receipt Date: 20231211
  Transmission Date: 20240110
  Serious: Yes (Other)
  Sender: FDA-Public Use
  Company Number: None

PATIENT
  Age: 66 Year
  Sex: Female
  Weight: 76 kg

DRUGS (3)
  1. METRONIDAZOLE [Suspect]
     Active Substance: METRONIDAZOLE
     Indication: Sepsis
     Dosage: 500 MG (MILLIGRAM) AT AN UNSPECIFIED FREQUENCY (DOSAGE TEXT: 3/D)
     Route: 042
     Dates: start: 20230728
  2. ACETAMINOPHEN [Suspect]
     Active Substance: ACETAMINOPHEN
     Indication: Pain
     Dosage: 1 G (GRAM) AT AN UNSPECIFIED FREQUENCY (DOSAGE TEXT: 3/D)
     Route: 042
     Dates: start: 20230720
  3. AMOXICILLIN [Suspect]
     Active Substance: AMOXICILLIN
     Indication: Sepsis
     Dosage: (PANPHARMA) 2 G (GRAM) AT AN UNSPECIFIED FREQUENCY (DOSAGE TEXT: 4/D) (POWDER FOR SOLUTION INJECTABL
     Route: 042
     Dates: start: 20230728

REACTIONS (1)
  - Hepatic cytolysis [Not Recovered/Not Resolved]

NARRATIVE: CASE EVENT DATE: 20230805
